FAERS Safety Report 5247703-7 (Version None)
Quarter: 2007Q1

REPORT INFORMATION
  Report Type: 
  Country: None (occurrence: None)
  Receive Date: 20070227
  Receipt Date: 20070221
  Transmission Date: 20070707
  Serious: Yes (Hospitalization)
  Sender: FDA-Public Use
  Company Number: FR-ELI_LILLY_AND_COMPANY-FR200612000454

PATIENT
  Age: 76 Year
  Sex: Male

DRUGS (1)
  1. ALIMTA [Suspect]
     Indication: LUNG ADENOCARCINOMA
     Dosage: 850 MG, OTHER
     Route: 042
     Dates: start: 20060929, end: 20060929

REACTIONS (2)
  - CHOLESTASIS [None]
  - PANCYTOPENIA [None]
